FAERS Safety Report 26062696 (Version 1)
Quarter: 2025Q4

REPORT INFORMATION
  Report Type: Spontaneous
  Country: CH (occurrence: CH)
  Receive Date: 20251119
  Receipt Date: 20251119
  Transmission Date: 20260118
  Serious: Yes (Other)
  Sender: TEVA
  Company Number: CH-TEVA-VS-3393125

PATIENT
  Age: 26 Year
  Sex: Male

DRUGS (3)
  1. GABAPENTIN [Suspect]
     Active Substance: GABAPENTIN
     Indication: Intellectual disability
     Dosage: RECEIVED NIGHTLY
     Route: 065
  2. BOTULINUM TOXIN NOS [Concomitant]
     Active Substance: BOTULINUM TOXIN NOS
     Indication: Intellectual disability
     Dosage: RECEIVED 15 UNITS INTO EACH MASSETER MUSCLE EVERY 3-4 MONTHS
     Route: 065
  3. TETRABENAZINE [Suspect]
     Active Substance: TETRABENAZINE
     Indication: Intellectual disability
     Route: 065

REACTIONS (3)
  - Somnolence [Unknown]
  - Headache [Unknown]
  - Therapy non-responder [Unknown]
